FAERS Safety Report 6293788-9 (Version None)
Quarter: 2009Q3

REPORT INFORMATION
  Report Type: 
  Country: None (occurrence: None)
  Receive Date: 20090731
  Receipt Date: 20090731
  Transmission Date: 20100115
  Serious: No
  Sender: FDA-Public Use
  Company Number: None

PATIENT
  Sex: Female
  Weight: 58.9676 kg

DRUGS (2)
  1. TIMOLOL GFS [Suspect]
     Indication: INTRAOCULAR PRESSURE TEST ABNORMAL
     Dates: start: 20080803, end: 20080901
  2. TIMOLOL GFS [Suspect]
     Indication: POSTOPERATIVE CARE
     Dates: start: 20080803, end: 20080901

REACTIONS (1)
  - AMNESIA [None]
